FAERS Safety Report 5523772-1 (Version None)
Quarter: 2007Q4

REPORT INFORMATION
  Report Type: 
  Country: None (occurrence: None)
  Receive Date: 20071121
  Receipt Date: 20071109
  Transmission Date: 20080405
  Serious: Yes (Hospitalization)
  Sender: FDA-Public Use
  Company Number: NO-GENENTECH-247026

PATIENT
  Sex: Female
  Weight: 110 kg

DRUGS (4)
  1. HERCEPTIN [Suspect]
     Indication: BREAST CANCER
     Dosage: 150 MG/5ML, UNK
     Route: 042
     Dates: start: 20070725
  2. ANTIHYPERTENSIVE AGENTS [Concomitant]
     Indication: DRUG USE FOR UNKNOWN INDICATION
  3. ATACAND HCT [Concomitant]
     Indication: DRUG USE FOR UNKNOWN INDICATION
  4. PLENDIL [Concomitant]
     Indication: DRUG USE FOR UNKNOWN INDICATION

REACTIONS (1)
  - CEREBRAL INFARCTION [None]
